FAERS Safety Report 6657342-9 (Version None)
Quarter: 2010Q1

REPORT INFORMATION
  Report Type: 
  Country: None (occurrence: None)
  Receive Date: 20100319
  Receipt Date: 20090813
  Transmission Date: 20100710
  Serious: Yes (Other)
  Sender: FDA-Public Use
  Company Number: 2009SP020183

PATIENT
  Sex: Male

DRUGS (2)
  1. PEG-INTRON [Suspect]
     Indication: HEPATITIS C
     Dosage: ; SC
     Route: 058
     Dates: start: 20090320
  2. RIBAVIRIN [Suspect]
     Indication: HEPATITIS C
     Dates: start: 20090320

REACTIONS (3)
  - ALOPECIA [None]
  - NAUSEA [None]
  - TYPE 2 DIABETES MELLITUS [None]
